FAERS Safety Report 22632929 (Version 1)
Quarter: 2023Q2

REPORT INFORMATION
  Report Type: Report from Study
  Country: US (occurrence: US)
  Receive Date: 20230623
  Receipt Date: 20230623
  Transmission Date: 20230721
  Serious: Yes (Other)
  Sender: FDA-Public Use
  Company Number: US-ABBVIE-5294073

PATIENT
  Age: 72 Year
  Sex: Female

DRUGS (2)
  1. HUMIRA [Suspect]
     Active Substance: ADALIMUMAB
     Indication: Product used for unknown indication
     Route: 058
     Dates: start: 2020
  2. HUMIRA [Suspect]
     Active Substance: ADALIMUMAB

REACTIONS (10)
  - Mycobacterium tuberculosis complex test positive [Not Recovered/Not Resolved]
  - Skin odour abnormal [Unknown]
  - Hidradenitis [Not Recovered/Not Resolved]
  - Erythema [Unknown]
  - Pain [Unknown]
  - Skin irritation [Unknown]
  - Injection site pruritus [Recovered/Resolved]
  - Dry skin [Unknown]
  - Infection [Unknown]
  - Peripheral swelling [Unknown]

NARRATIVE: CASE EVENT DATE: 20230401
